FAERS Safety Report 11813671 (Version 1)
Quarter: 2015Q4

REPORT INFORMATION
  Report Type: Spontaneous
  Country: US (occurrence: US)
  Receive Date: 20151209
  Receipt Date: 20151209
  Transmission Date: 20160305
  Serious: No
  Sender: FDA-Public Use
  Company Number: US-LUNDBECK-DKLU2006451

PATIENT
  Sex: Female

DRUGS (2)
  1. ONFI [Suspect]
     Active Substance: CLOBAZAM
     Indication: GENERALISED NON-CONVULSIVE EPILEPSY
     Route: 065
     Dates: start: 20151013
  2. DEPAKOTE DELAYED RELEASE [Concomitant]
     Indication: PRODUCT USED FOR UNKNOWN INDICATION
     Route: 065

REACTIONS (1)
  - Rash generalised [Not Recovered/Not Resolved]
